FAERS Safety Report 6137563-4 (Version None)
Quarter: 2009Q1

REPORT INFORMATION
  Report Type: 
  Country: None (occurrence: None)
  Receive Date: 20090331
  Receipt Date: 20090324
  Transmission Date: 20090719
  Serious: Yes (Other)
  Sender: FDA-Public Use
  Company Number: US-RANBAXY-2009US-22608

PATIENT

DRUGS (8)
  1. ISOTRETINOIN [Suspect]
     Indication: KERATOSIS FOLLICULAR
     Dosage: 40 MG, QD
     Route: 048
     Dates: start: 20081124
  2. ISOTRETINOIN [Suspect]
     Dosage: 40 MG, QD
     Route: 048
     Dates: start: 20080609, end: 20080101
  3. ISOTRETINOIN [Suspect]
     Dosage: 20 MG, QD
     Route: 048
     Dates: start: 20070801
  4. ISOTRETINOIN [Suspect]
     Dosage: 20 MG, QD
     Route: 048
     Dates: start: 20070228, end: 20070101
  5. ISOTRETINOIN [Suspect]
     Dosage: 20 MG, QD
     Route: 048
     Dates: start: 20061110, end: 20070101
  6. CLARAVIS [Suspect]
     Indication: KERATOSIS FOLLICULAR
     Dosage: 40 MG, QD
     Route: 048
     Dates: start: 20080825
  7. CLARAVIS [Suspect]
     Indication: KERATOSIS FOLLICULAR
     Dosage: 20 MG, QD
     Route: 048
     Dates: start: 20081016
  8. CLARAVIS [Suspect]
     Dosage: 20 MG, QD
     Route: 048
     Dates: start: 20071027

REACTIONS (1)
  - PREGNANCY [None]
